FAERS Safety Report 6836550-8 (Version None)
Quarter: 2010Q3

REPORT INFORMATION
  Report Type: 
  Country: None (occurrence: None)
  Receive Date: 20100713
  Receipt Date: 20100702
  Transmission Date: 20110219
  Serious: Yes (Other)
  Sender: FDA-Public Use
  Company Number: US-JNJFOC-20100701482

PATIENT
  Age: 38 Year
  Sex: Female
  Weight: 84.37 kg

DRUGS (3)
  1. PALIPERIDONE [Interacting]
     Indication: PRODUCT USED FOR UNKNOWN INDICATION
     Route: 048
  2. CHANTIX [Suspect]
     Indication: SMOKING CESSATION THERAPY
  3. GEODON [Interacting]
     Indication: PRODUCT USED FOR UNKNOWN INDICATION

REACTIONS (9)
  - AFFECTIVE DISORDER [None]
  - AMNESIA [None]
  - ATAXIA [None]
  - DEPRESSION [None]
  - DRUG INTERACTION [None]
  - DYSARTHRIA [None]
  - MANIA [None]
  - RESTLESSNESS [None]
  - SLEEP DISORDER [None]
